FAERS Safety Report 9490686 (Version 1)
Quarter: 2013Q4

REPORT INFORMATION
  Report Type: Spontaneous
  Country: US (occurrence: None)
  Receive Date: 20130828
  Receipt Date: 20130828
  Transmission Date: 20140711
  Serious: Yes (Hospitalization)
  Sender: FDA-Public Use
  Company Number: None

PATIENT
  Age: 71 Year
  Sex: Male
  Weight: 92.08 kg

DRUGS (13)
  1. IBRUTINIB [Suspect]
     Indication: CHRONIC LYMPHOCYTIC LEUKAEMIA
     Dosage: 420MG QD PO
     Route: 048
     Dates: start: 20121017, end: 20130817
  2. CYANOCOBALAMIN (VITAMIN B-12 IJ) [Concomitant]
  3. VALACYCLOVIR [Concomitant]
  4. PANTOPRAZOLE [Concomitant]
  5. IMMUNE GLOBULIN, HUMAN (PRIVIGEN IV) [Concomitant]
  6. PREDNISONE [Concomitant]
  7. METOPROLOL [Concomitant]
  8. ATORVASTATIN [Concomitant]
  9. CHOLECALCIFEROL (CVS VIT D 5000 HIGH POTENCY) [Concomitant]
  10. TRAZODONE [Concomitant]
  11. CETIRIZINE (KLS ALLER-TEC) [Concomitant]
  12. MULTIPLE VITAMINS-MINERALS (CENTRUM SILVER) [Concomitant]
  13. TESTOSTERONE (ANDROGEL) [Concomitant]

REACTIONS (4)
  - Headache [None]
  - Activated partial thromboplastin time prolonged [None]
  - Subdural haemorrhage [None]
  - Platelet count decreased [None]
